FAERS Safety Report 12691285 (Version 1)
Quarter: 2016Q3

REPORT INFORMATION
  Report Type: Spontaneous
  Country: US (occurrence: US)
  Receive Date: 20160826
  Receipt Date: 20160826
  Transmission Date: 20161109
  Serious: No
  Sender: FDA-Public Use
  Company Number: US-009507513-1608USA007120

PATIENT
  Age: 16 Year
  Sex: Female
  Weight: 86.17 kg

DRUGS (1)
  1. NEXPLANON [Suspect]
     Active Substance: ETONOGESTREL
     Indication: CONTRACEPTION
     Dosage: 1 ROD / ONCE PER THREE YEARS
     Route: 059
     Dates: start: 20160115

REACTIONS (5)
  - Implant site swelling [Unknown]
  - Device difficult to use [Not Recovered/Not Resolved]
  - Hypersensitivity [Unknown]
  - Implant site fibrosis [Unknown]
  - Implant site vesicles [Recovered/Resolved]

NARRATIVE: CASE EVENT DATE: 2016
